FAERS Safety Report 9734440 (Version 4)
Quarter: 2014Q2

REPORT INFORMATION
  Report Type: Spontaneous
  Country: US (occurrence: US)
  Receive Date: 20131206
  Receipt Date: 20140408
  Transmission Date: 20141212
  Serious: Yes (Other)
  Sender: FDA-Public Use
  Company Number: US-BEH-2013039281

PATIENT
  Age: 64 Year
  Sex: Female
  Weight: 67 kg

DRUGS (28)
  1. HIZENTRA [Suspect]
     Dosage: 1-4 SITES OVER 1-2 HOURS
     Route: 058
  2. HIZENTRA [Suspect]
     Indication: IMMUNODEFICIENCY COMMON VARIABLE
     Dosage: 4 GM 20 ML VIAL
     Route: 058
  3. HIZENTRA [Suspect]
     Dosage: 1-4 SITES OVER 1-2 HOURS
     Route: 058
  4. CLINDAMYCIN [Concomitant]
  5. CEFDINIR [Concomitant]
  6. CEFUROXIME [Concomitant]
  7. MUPIROCIN [Concomitant]
  8. ACETAMINOPHEN [Concomitant]
  9. DIPHENHYDRAMINE [Concomitant]
  10. LIDOCAINE/PRILOCAINE [Concomitant]
  11. EPI-PEN [Concomitant]
  12. ZINC [Concomitant]
  13. GAS-X [Concomitant]
  14. RITALIN [Concomitant]
  15. CHLOR-TRIMETON ALLERGY [Concomitant]
  16. NASONEX [Concomitant]
  17. TAGAMET [Concomitant]
  18. PULMICORT [Concomitant]
  19. CELEXA [Concomitant]
  20. MULTIVITAMINS [Concomitant]
  21. VITAMIN B12 [Concomitant]
  22. DUONEB [Concomitant]
  23. VITAMIN C [Concomitant]
  24. SINGULAIR [Concomitant]
  25. FLONASE [Concomitant]
  26. BENADRYL ALLERGY [Concomitant]
  27. SUDAFED [Concomitant]
  28. ZITHROMAX [Concomitant]

REACTIONS (16)
  - Staphylococcal infection [Unknown]
  - Heart rate increased [Unknown]
  - Infusion site pruritus [Unknown]
  - Blood pressure decreased [Unknown]
  - Headache [Unknown]
  - Back pain [Unknown]
  - Fatigue [Unknown]
  - Injection site erythema [Unknown]
  - Injection site pain [Unknown]
  - Injection site inflammation [Unknown]
  - Infusion site urticaria [Unknown]
  - Infusion site pruritus [Unknown]
  - Infusion site swelling [Unknown]
  - Infusion site hypersensitivity [Unknown]
  - Abdominal distension [Unknown]
  - Somnolence [Unknown]
